FAERS Safety Report 18314192 (Version 2)
Quarter: 2021Q1

REPORT INFORMATION
  Report Type: Report from Study
  Country: None (occurrence: US)
  Receive Date: 20200926
  Receipt Date: 20210210
  Transmission Date: 20210419
  Serious: Yes (Death, Hospitalization, Other)
  Sender: FDA-Public Use
  Company Number: US-ABBVIE-20K-163-3580374-00

PATIENT
  Age: 70 Year
  Sex: Male
  Weight: 149.82 kg

DRUGS (2)
  1. HUMIRA [Suspect]
     Active Substance: ADALIMUMAB
     Indication: PSORIASIS
     Dosage: STOPPED BETWEEN 2015 TO 2019
     Route: 058
     Dates: start: 2011
  2. HUMIRA [Suspect]
     Active Substance: ADALIMUMAB
     Route: 058
     Dates: start: 202007

REACTIONS (17)
  - Coma [Not Recovered/Not Resolved]
  - Suspected COVID-19 [Not Recovered/Not Resolved]
  - Hypophagia [Not Recovered/Not Resolved]
  - Dyspnoea [Not Recovered/Not Resolved]
  - Dysstasia [Unknown]
  - Fall [Not Recovered/Not Resolved]
  - Neurogenic bladder [Not Recovered/Not Resolved]
  - Coronary artery disease [Fatal]
  - Cerebrovascular accident [Fatal]
  - Myocardial infarction [Recovered/Resolved]
  - Cough [Not Recovered/Not Resolved]
  - Ageusia [Not Recovered/Not Resolved]
  - Chronic obstructive pulmonary disease [Fatal]
  - Thrombosis [Not Recovered/Not Resolved]
  - Gait inability [Not Recovered/Not Resolved]
  - Lung neoplasm malignant [Not Recovered/Not Resolved]
  - Anosmia [Not Recovered/Not Resolved]

NARRATIVE: CASE EVENT DATE: 2017
